FAERS Safety Report 9934915 (Version 2)
Quarter: 2014Q1

REPORT INFORMATION
  Report Type: Report from Study
  Country: US (occurrence: US)
  Receive Date: 20140228
  Receipt Date: 20140228
  Transmission Date: 20141002
  Serious: Yes (Hospitalization)
  Sender: FDA-Public Use
  Company Number: PHEH2014US002636

PATIENT
  Age: 59 Year
  Sex: Male
  Weight: 75 kg

DRUGS (1)
  1. NEORAL [Suspect]
     Indication: LIVER TRANSPLANT
     Dosage: 100 MG, BID
     Route: 048

REACTIONS (4)
  - Expired drug administered [Unknown]
  - Dehydration [Unknown]
  - Renal failure acute [Recovered/Resolved]
  - Atypical pneumonia [Unknown]
